FAERS Safety Report 5307562-0 (Version None)
Quarter: 2007Q2

REPORT INFORMATION
  Report Type: 
  Country: None (occurrence: None)
  Receive Date: 20070425
  Receipt Date: 20070413
  Transmission Date: 20071010
  Serious: Yes (Hospitalization)
  Sender: FDA-Public Use
  Company Number: ES-ELI_LILLY_AND_COMPANY-ES200704003842

PATIENT
  Age: 77 Year
  Sex: Female

DRUGS (5)
  1. FORTEO [Suspect]
     Indication: OSTEOPOROSIS
     Dosage: 20 UG, DAILY (1/D)
     Route: 058
     Dates: start: 20061101, end: 20070301
  2. ACETAMINOPHEN [Concomitant]
  3. SEROPRAM [Concomitant]
  4. TORECAN [Concomitant]
  5. ORFIDAL [Concomitant]

REACTIONS (6)
  - HEPATIC NEOPLASM MALIGNANT [None]
  - INTESTINAL OBSTRUCTION [None]
  - NAUSEA [None]
  - RENAL CELL CARCINOMA STAGE UNSPECIFIED [None]
  - RENAL FAILURE [None]
  - VOMITING [None]
